FAERS Safety Report 18545670 (Version 1)
Quarter: 2020Q4

REPORT INFORMATION
  Report Type: Other
  Country: US (occurrence: US)
  Receive Date: 20201125
  Receipt Date: 20201125
  Transmission Date: 20210114
  Serious: Yes (Life-Threatening, Hospitalization, Other)
  Sender: FDA-Public Use
  Company Number: US-C B FLEET CO INC-202011-US-004094

PATIENT
  Age: 81 Year
  Sex: Male

DRUGS (3)
  1. AEROSOLIZED TOPICAL ANESTHETIC [LIDOCAINE] [Suspect]
     Active Substance: LIDOCAINE
     Route: 061
  2. ASPIRIN. [Suspect]
     Active Substance: ASPIRIN
     Indication: PROPHYLAXIS
     Dosage: 81MG DAILY
     Route: 048
  3. LIDOCAINE HYDROCHLORIDE. [Suspect]
     Active Substance: LIDOCAINE HYDROCHLORIDE
     Route: 048

REACTIONS (6)
  - Hypoxia [Unknown]
  - Mycobacterium avium complex infection [Recovered/Resolved]
  - Dyspnoea [Unknown]
  - Bronchial haemorrhage [Unknown]
  - Haemoptysis [Recovered/Resolved]
  - Cough [Unknown]
